FAERS Safety Report 24584848 (Version 1)
Quarter: 2024Q4

REPORT INFORMATION
  Report Type: Spontaneous
  Country: US (occurrence: None)
  Receive Date: 20241106
  Receipt Date: 20241106
  Transmission Date: 20250115
  Serious: Yes (Hospitalization)
  Sender: Public
  Company Number: None

PATIENT
  Sex: Male

DRUGS (1)
  1. FULPHILA [Suspect]
     Active Substance: PEGFILGRASTIM-JMDB
     Indication: Thrombocytopenia
     Dosage: OTHER FREQUENCY : EVERY21DAYS;?
     Route: 058
     Dates: start: 202410

REACTIONS (1)
  - Vomiting [None]
